FAERS Safety Report 8133938-2 (Version None)
Quarter: 2012Q1

REPORT INFORMATION
  Report Type: 
  Country: None (occurrence: None)
  Receive Date: 20120213
  Receipt Date: 20120202
  Transmission Date: 20120608
  Serious: Yes (Other)
  Sender: FDA-Public Use
  Company Number: DE-ASTRAZENECA-2012SE08053

PATIENT
  Sex: Female

DRUGS (2)
  1. SEROQUEL XR [Suspect]
     Route: 048
  2. ANTIDEPRESSIVE MEDICATION [Concomitant]

REACTIONS (2)
  - LACTATION DISORDER [None]
  - BLOOD PROLACTIN INCREASED [None]
